FAERS Safety Report 17136563 (Version 1)
Quarter: 2019Q4

REPORT INFORMATION
  Report Type: Report from Study
  Country: KW (occurrence: KW)
  Receive Date: 20191210
  Receipt Date: 20191210
  Transmission Date: 20200122
  Serious: Yes (Other)
  Sender: FDA-Public Use
  Company Number: KW-JNJFOC-20191212130

PATIENT
  Sex: Male
  Weight: 60 kg

DRUGS (1)
  1. STELARA [Suspect]
     Active Substance: USTEKINUMAB
     Indication: CROHN^S DISEASE
     Route: 058
     Dates: start: 20171101

REACTIONS (3)
  - Off label use [Unknown]
  - Colectomy [Unknown]
  - Product use issue [Unknown]

NARRATIVE: CASE EVENT DATE: 2019
